FAERS Safety Report 23507222 (Version 1)
Quarter: 2024Q1

REPORT INFORMATION
  Report Type: Spontaneous
  Country: VN (occurrence: VN)
  Receive Date: 20240209
  Receipt Date: 20240209
  Transmission Date: 20240409
  Serious: Yes (Other)
  Sender: FDA-Public Use
  Company Number: VN-SUN PHARMACEUTICAL INDUSTRIES LTD-2024R1-430783

PATIENT
  Age: 47 Year
  Sex: Male

DRUGS (1)
  1. CAPECITABINE [Suspect]
     Active Substance: CAPECITABINE
     Indication: Rectal cancer
     Dosage: 1250 MILLIGRAM/SQ. METER, BID
     Route: 065

REACTIONS (3)
  - Disease progression [Unknown]
  - Paralysis [Unknown]
  - Headache [Unknown]
